FAERS Safety Report 4884859-X (Version None)
Quarter: 2006Q1

REPORT INFORMATION
  Report Type: 
  Country: None (occurrence: None)
  Receive Date: 20060119
  Receipt Date: 20051207
  Transmission Date: 20060701
  Serious: Yes (Hospitalization)
  Sender: FDA-Public Use
  Company Number: CH-GLAXOSMITHKLINE-B0403200A

PATIENT
  Age: 37 Year
  Sex: Male

DRUGS (4)
  1. SERETIDE [Suspect]
     Indication: ASTHMA
     Dosage: 250U TWICE PER DAY
     Route: 045
     Dates: start: 20000201
  2. SINGULAIR [Concomitant]
     Indication: ASTHMA
     Dosage: 10MG PER DAY
     Route: 048
     Dates: start: 19980101
  3. PULMICORT [Concomitant]
     Indication: ASTHMA
     Route: 055
     Dates: start: 20000201
  4. FORADIL [Concomitant]
     Indication: ASTHMA
     Route: 055
     Dates: start: 20000201

REACTIONS (2)
  - GAMMA-GLUTAMYLTRANSFERASE INCREASED [None]
  - OSTEONECROSIS [None]
